FAERS Safety Report 19449067 (Version 1)
Quarter: 2021Q2

REPORT INFORMATION
  Report Type: Spontaneous
  Country: SE (occurrence: SE)
  Receive Date: 20210622
  Receipt Date: 20210622
  Transmission Date: 20210717
  Serious: Yes (Hospitalization)
  Sender: FDA-Public Use
  Company Number: SE-LUPIN PHARMACEUTICALS INC.-2021-09933

PATIENT
  Sex: Female

DRUGS (3)
  1. METHOTREXATE. [Suspect]
     Active Substance: METHOTREXATE
     Indication: ECTOPIC PREGNANCY TERMINATION
     Dosage: 1 MILLIGRAM/KILOGRAM (4 DOSES EVERY 48H)
     Route: 030
  2. POTASSIUM CHLORIDE. [Suspect]
     Active Substance: POTASSIUM CHLORIDE
     Indication: ECTOPIC PREGNANCY
     Dosage: 2 MILLILITER (30 MMOL/ML; ULTRASOUND?GUIDED INTRASACCULAR INJECTION)
     Route: 065
  3. FOLIC ACID. [Concomitant]
     Active Substance: FOLIC ACID
     Indication: CHEMOTHERAPY SIDE EFFECT PROPHYLAXIS
     Dosage: 1 MILLIGRAM/KILOGRAM (ADMINISTERED 24 H AFTER METHOTREXATE)
     Route: 065

REACTIONS (1)
  - Treatment failure [Unknown]
